FAERS Safety Report 6535825-X (Version None)
Quarter: 2010Q1

REPORT INFORMATION
  Report Type: 
  Country: None (occurrence: None)
  Receive Date: 20100113
  Receipt Date: 20100108
  Transmission Date: 20100710
  Serious: Yes (Death)
  Sender: FDA-Public Use
  Company Number: FR-PFIZER INC-2010003186

PATIENT
  Sex: Female
  Weight: 62 kg

DRUGS (2)
  1. IRINOTECAN HCL [Suspect]
     Indication: GLIOBLASTOMA
     Dosage: 210 MG DAILY
     Route: 042
     Dates: start: 20090219
  2. AVASTIN [Suspect]
     Indication: GLIOBLASTOMA
     Dosage: 620 MG DAILY
     Route: 042
     Dates: start: 20090219

REACTIONS (2)
  - COMA [None]
  - INTRACRANIAL PRESSURE INCREASED [None]
